FAERS Safety Report 24872754 (Version 3)
Quarter: 2025Q1

REPORT INFORMATION
  Report Type: Report from Study
  Country: US (occurrence: US)
  Receive Date: 20250122
  Receipt Date: 20250307
  Transmission Date: 20250409
  Serious: Yes (Hospitalization, Other)
  Sender: ACADIA PHARMACEUTICALS
  Company Number: US-ACADIA PHARMACEUTICALS INC.-ACA-2025-PIM-000305

PATIENT

DRUGS (18)
  1. NUPLAZID [Suspect]
     Active Substance: PIMAVANSERIN TARTRATE
     Indication: Parkinson^s disease psychosis
     Dosage: 34 MILLIGRAM, QD
     Route: 048
     Dates: start: 20241030
  2. AMLODIPINE [Concomitant]
     Active Substance: AMLODIPINE BESYLATE
  3. SINEMET CR [Concomitant]
     Active Substance: CARBIDOPA\LEVODOPA
  4. SINEMET [Concomitant]
     Active Substance: CARBIDOPA\LEVODOPA
  5. VITAMIN D3 [Concomitant]
     Active Substance: CHOLECALCIFEROL
  6. LOTRISONE [Concomitant]
     Active Substance: BETAMETHASONE DIPROPIONATE\CLOTRIMAZOLE
  7. FARXIGA [Concomitant]
     Active Substance: DAPAGLIFLOZIN PROPANEDIOL
  8. LASIX [Concomitant]
     Active Substance: FUROSEMIDE
  9. LEVEMIR [Concomitant]
     Active Substance: INSULIN DETEMIR
  10. LOSARTAN [Concomitant]
     Active Substance: LOSARTAN
  11. OMEPRAZOLE [Concomitant]
     Active Substance: OMEPRAZOLE
  12. MIRAPEX [Concomitant]
     Active Substance: PRAMIPEXOLE DIHYDROCHLORIDE
  13. AZILECT [Concomitant]
     Active Substance: RASAGILINE MESYLATE
  14. ROSUVASTATIN [Concomitant]
     Active Substance: ROSUVASTATIN
  15. JANUMET [Concomitant]
     Active Substance: METFORMIN HYDROCHLORIDE\SITAGLIPTIN PHOSPHATE
  16. RASAGILINE [Concomitant]
     Active Substance: RASAGILINE
  17. CARBIDOPA\LEVODOPA [Concomitant]
     Active Substance: CARBIDOPA\LEVODOPA
  18. PRAMIPEXOLE [Concomitant]
     Active Substance: PRAMIPEXOLE

REACTIONS (6)
  - Urinary tract infection [Unknown]
  - Blood glucose decreased [Unknown]
  - Hypotension [Unknown]
  - Wheelchair user [Not Recovered/Not Resolved]
  - Confusional state [Not Recovered/Not Resolved]
  - Hallucination [Recovered/Resolved]

NARRATIVE: CASE EVENT DATE: 20250104
